FAERS Safety Report 4742872-7 (Version None)
Quarter: 2005Q3

REPORT INFORMATION
  Report Type: 
  Country: None (occurrence: None)
  Receive Date: 20050810
  Receipt Date: 20050810
  Transmission Date: 20060218
  Serious: Yes (Hospitalization)
  Sender: FDA-Public Use
  Company Number: None

PATIENT
  Sex: Female
  Weight: 68.0396 kg

DRUGS (2)
  1. DILANTIN [Suspect]
     Indication: CONVULSION
     Dosage: 200 MG   TID  ORAL
     Route: 048
     Dates: start: 20050716, end: 20050722
  2. DILANTIN [Suspect]
     Indication: CONVULSION
     Dosage: 150 MG   TID   ORAL
     Route: 048
     Dates: start: 20050722, end: 20050805

REACTIONS (3)
  - DYSARTHRIA [None]
  - MENTAL STATUS CHANGES [None]
  - NAUSEA [None]
